FAERS Safety Report 10922718 (Version 1)
Quarter: 2015Q1

REPORT INFORMATION
  Report Type: Spontaneous
  Country: FR (occurrence: FR)
  Receive Date: 20150317
  Receipt Date: 20150317
  Transmission Date: 20150721
  Serious: Yes (Hospitalization, Other)
  Sender: FDA-Public Use
  Company Number: FR-GLAXOSMITHKLINE-FR2015GSK033314

PATIENT
  Age: 67 Year
  Sex: Male

DRUGS (16)
  1. ZOPHREN [Concomitant]
     Active Substance: ONDANSETRON
     Dosage: 8 MG, 1D
     Route: 042
     Dates: start: 20150119, end: 20150125
  2. SOLU-MEDROL [Concomitant]
     Active Substance: METHYLPREDNISOLONE SODIUM SUCCINATE
     Indication: ANTIEMETIC SUPPORTIVE CARE
     Dosage: 80 MG, 1D
     Dates: start: 20150119, end: 20150126
  3. ALLOPURINOL. [Concomitant]
     Active Substance: ALLOPURINOL
  4. AZARGA [Concomitant]
     Active Substance: BRINZOLAMIDE\TIMOLOL MALEATE
  5. VALACICLOVIR [Concomitant]
     Active Substance: VALACYCLOVIR HYDROCHLORIDE
  6. ALKERAN [Suspect]
     Active Substance: MELPHALAN
     Indication: CHEMOTHERAPY
     Dosage: 280 MG, SINGLE
     Route: 042
     Dates: start: 20150118
  7. PLASMALYTE [Concomitant]
     Active Substance: ELECTROLYTES NOS
     Indication: PROPHYLAXIS AGAINST DEHYDRATION
  8. ARACYTINE [Suspect]
     Active Substance: CYTARABINE
     Indication: CHEMOTHERAPY
     Dosage: UNK
     Route: 042
     Dates: start: 20150121, end: 20150124
  9. EMEND [Concomitant]
     Active Substance: APREPITANT
     Dosage: 80 MG, UNK
  10. SERESTA [Concomitant]
     Active Substance: OXAZEPAM
  11. ETOPOSIDE. [Suspect]
     Active Substance: ETOPOSIDE
     Indication: CHEMOTHERAPY
     Dosage: 200 MG, BID
     Dates: start: 20150121, end: 20150124
  12. EMEND [Concomitant]
     Active Substance: APREPITANT
     Indication: ANTIEMETIC SUPPORTIVE CARE
     Dosage: 125 MG, UNK
     Route: 048
     Dates: start: 20150120, end: 20150127
  13. DIFFU K [Concomitant]
     Active Substance: POTASSIUM CHLORIDE
  14. LUMIGAN [Concomitant]
     Active Substance: BIMATOPROST
  15. VALSARTAN. [Concomitant]
     Active Substance: VALSARTAN
  16. LEVACT (BENDAMUSTINE HYDROCHLORIDE) [Suspect]
     Active Substance: BENDAMUSTINE HYDROCHLORIDE
     Indication: CHEMOTHERAPY
     Dosage: 400 MG, 1D
     Route: 042
     Dates: start: 20150119, end: 20150120

REACTIONS (1)
  - Acute kidney injury [Recovered/Resolved]

NARRATIVE: CASE EVENT DATE: 20150124
